FAERS Safety Report 9897250 (Version 3)
Quarter: 2014Q1

REPORT INFORMATION
  Report Type: Report from Study
  Country: DE (occurrence: DE)
  Receive Date: 20140214
  Receipt Date: 20140317
  Transmission Date: 20141002
  Serious: Yes (Hospitalization)
  Sender: FDA-Public Use
  Company Number: DE-TEVA-462525USA

PATIENT
  Age: 72 Year
  Sex: Female

DRUGS (4)
  1. BENDAMUSTINE [Suspect]
     Indication: LYMPHOCYTIC LEUKAEMIA
     Dosage: 4 WEEKS, UP TO 6 CYCLES
     Route: 042
     Dates: start: 20140106, end: 20140108
  2. RITUXIMAB [Suspect]
     Indication: LYMPHOCYTIC LEUKAEMIA
     Dosage: 4 WEEKS, UP TO 6 CYCLES
     Route: 042
     Dates: start: 20140106, end: 20140108
  3. CIPROFLOXACIN [Concomitant]
     Dosage: 1000  DAILY;
     Route: 065
     Dates: start: 20140117, end: 20140121
  4. GRANOCYTE [Concomitant]
     Route: 065
     Dates: start: 20140117, end: 20140120

REACTIONS (3)
  - Angina pectoris [Recovered/Resolved]
  - Tachycardia [Recovered/Resolved]
  - Hyperventilation [Recovered/Resolved]
